FAERS Safety Report 4450152-2 (Version None)
Quarter: 2004Q3

REPORT INFORMATION
  Report Type: 
  Country: None (occurrence: None)
  Receive Date: 20040914
  Receipt Date: 20040830
  Transmission Date: 20050211
  Serious: Yes (Hospitalization)
  Sender: FDA-Public Use
  Company Number: 208769

PATIENT
  Age: 89 Year
  Sex: Female

DRUGS (1)
  1. RITUXAN [Suspect]
     Indication: NON-HODGKIN'S LYMPHOMA
     Dosage: 1/WEEK, 4 WEEKS, INTRAVENOUS
     Route: 042
     Dates: start: 19990101

REACTIONS (2)
  - INCOHERENT [None]
  - LETHARGY [None]
